FAERS Safety Report 9449222 (Version 1)
Quarter: 2013Q3

REPORT INFORMATION
  Report Type: Spontaneous
  Country: DE (occurrence: DE)
  Receive Date: 20130808
  Receipt Date: 20130808
  Transmission Date: 20140515
  Serious: Yes (Other)
  Sender: FDA-Public Use
  Company Number: DE-WATSON-2013-14036

PATIENT
  Age: 1 Day
  Sex: Female

DRUGS (4)
  1. METOPROLOL (UNKNOWN) [Suspect]
     Indication: HYPERTENSION
     Dosage: 200 [MG/D]/ 100 MG[MG/D]IN 1 TRIMESTER; 200 [MG/D] IN N2+3 TRIMESTER
     Route: 064
  2. NEPRESOL [Suspect]
     Indication: HYPERTENSION
     Dosage: 25 MG, BID
     Route: 064
  3. FOLSAEURE [Suspect]
     Indication: PROPHYLAXIS OF NEURAL TUBE DEFECT
     Dosage: UNK
     Route: 064
  4. PRESINOL [Concomitant]
     Indication: HYPERTENSION
     Dosage: 250 MG, DAILY
     Route: 065

REACTIONS (3)
  - Small for dates baby [Recovered/Resolved]
  - Vomiting neonatal [Recovered/Resolved]
  - Foetal exposure during pregnancy [Recovered/Resolved]
